FAERS Safety Report 21308815 (Version 2)
Quarter: 2022Q4

REPORT INFORMATION
  Report Type: Report from Study
  Country: ZA (occurrence: ZA)
  Receive Date: 20220908
  Receipt Date: 20221020
  Transmission Date: 20230113
  Serious: No
  Sender: FDA-Public Use
  Company Number: ZA-NOVARTISPH-NVSC2022ZA201724

PATIENT
  Age: 55 Year
  Sex: Female
  Weight: 62.7 kg

DRUGS (12)
  1. RIBOCICLIB [Suspect]
     Active Substance: RIBOCICLIB
     Indication: Breast cancer
     Dosage: 600 MG
     Route: 048
     Dates: start: 20201027
  2. ANASTROZOLE [Suspect]
     Active Substance: ANASTROZOLE
     Indication: Breast cancer
     Dosage: 1 MG, QD
     Route: 048
     Dates: start: 20201027
  3. MAGNESIUM [Concomitant]
     Active Substance: MAGNESIUM
     Indication: General physical condition
     Dosage: UNK
     Route: 065
     Dates: start: 20201001
  4. BETNOVATE [Concomitant]
     Active Substance: BETAMETHASONE
     Indication: Urticaria
     Dosage: UNK
     Route: 065
     Dates: start: 20220609
  5. ALPRAZOLAM [Concomitant]
     Active Substance: ALPRAZOLAM
     Indication: Anxiety
     Dosage: UNK
     Route: 065
     Dates: start: 20220811
  6. ACETAMINOPHEN [Concomitant]
     Active Substance: ACETAMINOPHEN
     Indication: General physical condition
     Dosage: UNK
     Route: 065
     Dates: start: 20201001
  7. FLAGYL [Concomitant]
     Active Substance: METRONIDAZOLE\METRONIDAZOLE HYDROCHLORIDE
     Indication: Fungal infection
     Dosage: UNK
     Route: 065
     Dates: start: 20201123
  8. VALIUM [Concomitant]
     Active Substance: DIAZEPAM
     Indication: Anxiety
     Dosage: UNK
     Route: 065
     Dates: start: 20201001
  9. ZOMETA [Concomitant]
     Active Substance: ZOLEDRONIC ACID
     Indication: Metastases to bone
     Dosage: UNK
     Route: 065
     Dates: start: 20201124
  10. CLOTRIMAZOLE [Concomitant]
     Active Substance: CLOTRIMAZOLE
     Indication: Dysuria
     Dosage: UNK
     Route: 065
     Dates: start: 20201217
  11. CALCIUM [Concomitant]
     Active Substance: CALCIUM
     Indication: Supplementation therapy
     Dosage: UNK
     Route: 065
     Dates: start: 20201215
  12. PHENERGAN [Concomitant]
     Active Substance: PROMETHAZINE HYDROCHLORIDE
     Indication: Urticaria
     Dosage: UNK
     Route: 065
     Dates: start: 20220609

REACTIONS (1)
  - Pneumothorax [Not Recovered/Not Resolved]

NARRATIVE: CASE EVENT DATE: 20220906
